FAERS Safety Report 19821493 (Version 1)
Quarter: 2021Q3

REPORT INFORMATION
  Report Type: Spontaneous
  Country: US (occurrence: US)
  Receive Date: 20210909
  Receipt Date: 20210909
  Transmission Date: 20211014
  Serious: Yes (Other)
  Sender: FDA-Public Use
  Company Number: None

PATIENT
  Age: 68 Year
  Sex: Female
  Weight: 54.43 kg

DRUGS (11)
  1. SUPREP BOWEL PREP [Suspect]
     Active Substance: MAGNESIUM SULFATE\POTASSIUM SULFATE\SODIUM SULFATE
     Indication: COLONOSCOPY
     Dosage: ?          QUANTITY:2 DF DOSAGE FORM;OTHER FREQUENCY: DOSES;?
     Route: 048
     Dates: start: 20210629, end: 20210630
  2. VITAMIN B COMPLEX [Concomitant]
     Active Substance: CYANOCOBALAMIN\DEXPANTHENOL\NIACINAMIDE\PYRIDOXINE HYDROCHLORIDE\RIBOFLAVIN 5^-PHOSPHATE SODIUM\THIAMINE HYDROCHLORIDE\VITAMIN B COMPLEX
  3. INFLAMA?CARE [Concomitant]
  4. MULTI?VIT [Concomitant]
     Active Substance: VITAMINS
  5. VITAMIN D3 [Concomitant]
     Active Substance: CHOLECALCIFEROL
  6. PLANTERY HERBALS [Concomitant]
  7. CRAN?ACTIN [Concomitant]
  8. FISH OIL [Concomitant]
     Active Substance: FISH OIL
  9. TURMERIC/BOSWELLIA, COMPLEX [Concomitant]
  10. PROBIOTIC CAPSULE [Concomitant]
  11. VITAMIN C [Concomitant]
     Active Substance: ASCORBIC ACID

REACTIONS (2)
  - Vomiting [None]
  - Fluid retention [None]

NARRATIVE: CASE EVENT DATE: 20210630
